FAERS Safety Report 6259645-9 (Version None)
Quarter: 2009Q3

REPORT INFORMATION
  Report Type: 
  Country: None (occurrence: None)
  Receive Date: 20090702
  Receipt Date: 20090617
  Transmission Date: 20100115
  Serious: Yes (Hospitalization)
  Sender: FDA-Public Use
  Company Number: B0580831A

PATIENT
  Age: 24 Month
  Sex: Female

DRUGS (1)
  1. LAMOTRIGINE [Suspect]
     Dosage: 200 MG / SINGLE DOSE / ORAL
     Route: 048

REACTIONS (9)
  - ABNORMAL BEHAVIOUR [None]
  - AGGRESSION [None]
  - AGITATION [None]
  - CHOREOATHETOSIS [None]
  - DRUG LEVEL INCREASED [None]
  - HEPATIC ENZYME INCREASED [None]
  - SOMNOLENCE [None]
  - TREMOR [None]
  - VOMITING [None]
